FAERS Safety Report 7362044-X (Version None)
Quarter: 2011Q1

REPORT INFORMATION
  Report Type: 
  Country: None (occurrence: None)
  Receive Date: 20110318
  Receipt Date: 20110308
  Transmission Date: 20110831
  Serious: Yes (Hospitalization, Other)
  Sender: FDA-Public Use
  Company Number: US-JNJFOC-20081103798

PATIENT
  Sex: Female
  Weight: 63.2 kg

DRUGS (6)
  1. REMICADE [Suspect]
     Route: 042
  2. REMICADE [Suspect]
     Dosage: TOTAL 10 DOSES
     Route: 042
  3. PREDNISONE [Concomitant]
  4. REMICADE [Suspect]
     Route: 042
  5. REMICADE [Suspect]
     Indication: CROHN'S DISEASE
     Route: 042
  6. MERCAPTOPURINE [Concomitant]

REACTIONS (3)
  - ABDOMINAL PAIN [None]
  - VOMITING [None]
  - DECREASED APPETITE [None]
